FAERS Safety Report 4435841-8 (Version None)
Quarter: 2004Q3

REPORT INFORMATION
  Report Type: 
  Country: None (occurrence: None)
  Receive Date: 20040726
  Receipt Date: 20040319
  Transmission Date: 20050211
  Serious: No
  Sender: FDA-Public Use
  Company Number: USA040260160

PATIENT
  Age: 64 Year
  Sex: Female

DRUGS (5)
  1. FORTEO [Suspect]
     Indication: OSTEOPOROSIS
     Dates: start: 20040124
  2. EVISTA [Concomitant]
  3. CALCIUM [Concomitant]
  4. VITAMINS NOS [Concomitant]
  5. FOSAMAX [Concomitant]

REACTIONS (5)
  - CHANGE OF BOWEL HABIT [None]
  - CONSTIPATION [None]
  - HAEMATOCHEZIA [None]
  - NAUSEA [None]
  - RECTAL TENESMUS [None]
